FAERS Safety Report 7045591-X (Version None)
Quarter: 2010Q4

REPORT INFORMATION
  Report Type: 
  Country: None (occurrence: None)
  Receive Date: 20101014
  Receipt Date: 20101005
  Transmission Date: 20110411
  Serious: Yes (Other)
  Sender: FDA-Public Use
  Company Number: FR-ROCHE-731644

PATIENT
  Age: 50 Year
  Sex: Female

DRUGS (8)
  1. ROACTEMRA [Suspect]
     Dosage: FORM: INFUSION
     Route: 042
     Dates: start: 20100311, end: 20100311
  2. ROACTEMRA [Suspect]
     Dosage: SECOND COURSE
     Route: 042
  3. ROACTEMRA [Suspect]
     Dosage: THIRD COURSE, 8 MG/KG
     Route: 042
  4. ROACTEMRA [Suspect]
     Dosage: FOURTH COURSE
     Route: 042
     Dates: start: 20100614, end: 20100614
  5. ROACTEMRA [Suspect]
     Dosage: FIFTH COURSE
     Route: 042
     Dates: start: 20100701, end: 20100701
  6. ROACTEMRA [Suspect]
     Dosage: SIXTH COURSE
     Route: 042
     Dates: start: 20100803, end: 20100803
  7. ROACTEMRA [Suspect]
     Dosage: SEVENTH COURSE
     Route: 042
     Dates: end: 20100906
  8. METHOTREXATE [Concomitant]

REACTIONS (3)
  - ARTHRALGIA [None]
  - DISEASE PROGRESSION [None]
  - DISEASE RECURRENCE [None]
